FAERS Safety Report 23338362 (Version 2)
Quarter: 2023Q4

REPORT INFORMATION
  Report Type: Other
  Country: KR (occurrence: None)
  Receive Date: 20231226
  Receipt Date: 20231227
  Transmission Date: 20240109
  Serious: Yes (Death)
  Sender: FDA-Public Use
  Company Number: KR-ROCHE-3480407

PATIENT
  Age: 63 Year
  Sex: Male
  Weight: 58.5 kg

DRUGS (12)
  1. PERTUZUMAB [Suspect]
     Active Substance: PERTUZUMAB
     Indication: Gallbladder cancer
     Route: 042
     Dates: start: 20231107, end: 20231107
  2. PERTUZUMAB [Suspect]
     Active Substance: PERTUZUMAB
     Route: 042
     Dates: start: 20231128, end: 20231128
  3. TRASTUZUMAB [Suspect]
     Active Substance: TRASTUZUMAB
     Indication: Gallbladder cancer
     Route: 041
     Dates: start: 20231107, end: 20231107
  4. TRASTUZUMAB [Suspect]
     Active Substance: TRASTUZUMAB
     Route: 041
     Dates: start: 20231128, end: 20231128
  5. XARELTO [Concomitant]
     Active Substance: RIVAROXABAN
     Route: 048
     Dates: start: 20230830, end: 20231212
  6. GASTIIN CR [Concomitant]
     Route: 048
     Dates: start: 20230830, end: 20231212
  7. LANSOPRAZOLE [Concomitant]
     Active Substance: LANSOPRAZOLE
     Route: 048
     Dates: start: 20230803, end: 20231212
  8. MEGACE F [Concomitant]
     Route: 048
     Dates: start: 20230511, end: 20231212
  9. MAGNESIUM HYDROXIDE [Concomitant]
     Active Substance: MAGNESIUM HYDROXIDE
     Route: 048
     Dates: start: 20230601, end: 20231212
  10. OXYCODONE HYDROCHLORIDE [Concomitant]
     Active Substance: OXYCODONE HYDROCHLORIDE
     Route: 048
     Dates: start: 20231206, end: 20231212
  11. MORPHINE SULFATE [Concomitant]
     Active Substance: MORPHINE SULFATE
     Route: 042
     Dates: start: 20231206, end: 20231206
  12. TARGIN PR [Concomitant]
     Route: 048
     Dates: start: 20231206, end: 20231206

REACTIONS (1)
  - Sudden death [Fatal]

NARRATIVE: CASE EVENT DATE: 20231212
